FAERS Safety Report 5784245-4 (Version None)
Quarter: 2008Q2

REPORT INFORMATION
  Report Type: 
  Country: None (occurrence: None)
  Receive Date: 20080624
  Receipt Date: 20070601
  Transmission Date: 20081010
  Serious: No
  Sender: FDA-Public Use
  Company Number: US-ASTRAZENECA-2007UW11306

PATIENT
  Age: 65 Year
  Sex: Female
  Weight: 49.9 kg

DRUGS (18)
  1. PULMICORT RESPULES [Suspect]
     Indication: CHRONIC OBSTRUCTIVE PULMONARY DISEASE
     Route: 055
     Dates: start: 20070401
  2. PULMICORT RESPULES [Suspect]
     Indication: ASTHMA
     Route: 055
     Dates: start: 20070401
  3. PULMICORT RESPULES [Suspect]
     Indication: WHEEZING
     Route: 055
     Dates: start: 20070401
  4. PULMICORT RESPULES [Suspect]
     Route: 055
  5. PULMICORT RESPULES [Suspect]
     Route: 055
  6. PULMICORT RESPULES [Suspect]
     Route: 055
  7. IPRATROPIUM BROMIDE [Suspect]
     Indication: CHRONIC OBSTRUCTIVE PULMONARY DISEASE
     Dates: start: 20070401
  8. IPRATROPIUM BROMIDE [Suspect]
     Indication: ASTHMA
     Dates: start: 20070401
  9. ALBUTEROL [Suspect]
     Indication: CHRONIC OBSTRUCTIVE PULMONARY DISEASE
     Dates: start: 20070401
  10. ALBUTEROL [Suspect]
     Indication: ASTHMA
     Dates: start: 20070401
  11. THEOPHYLLINE [Concomitant]
  12. PROXETINE [Concomitant]
  13. LOVASTATIN [Concomitant]
  14. ASPIRIN [Concomitant]
  15. CALCIUM WITH VITAMIN D [Concomitant]
  16. CLONAZEPAM [Concomitant]
  17. PROAIR HFA [Concomitant]
  18. VITAMIN D [Concomitant]

REACTIONS (3)
  - DRUG INEFFECTIVE [None]
  - MEDICATION ERROR [None]
  - WHEEZING [None]
